FAERS Safety Report 9391082 (Version 1)
Quarter: 2013Q3

REPORT INFORMATION
  Report Type: Spontaneous
  Country: CA (occurrence: CA)
  Receive Date: 20130709
  Receipt Date: 20130709
  Transmission Date: 20140515
  Serious: Yes (Death)
  Sender: FDA-Public Use
  Company Number: CA-PFIZER INC-2013200098

PATIENT
  Age: 61 Year
  Sex: Male

DRUGS (2)
  1. SUTENT [Suspect]
     Indication: RENAL CELL CARCINOMA
     Dosage: 25 MG, UNK
  2. SUTENT [Suspect]
     Dosage: 37.5 MG, UNK

REACTIONS (1)
  - Death [Fatal]
